FAERS Safety Report 5736881-9 (Version None)
Quarter: 2008Q2

REPORT INFORMATION
  Report Type: 
  Country: None (occurrence: None)
  Receive Date: 20080508
  Receipt Date: 20080423
  Transmission Date: 20081010
  Serious: Yes (Hospitalization)
  Sender: FDA-Public Use
  Company Number: 2008S1007006

PATIENT
  Age: 86 Year
  Sex: Female

DRUGS (4)
  1. INDAPAMIDE [Suspect]
     Indication: HYPERTENSION
     Dosage: 2.5 MG; DAILY; ORAL
     Route: 048
     Dates: end: 20080407
  2. ACYCLOVIR [Concomitant]
  3. CALCICHEW D3 [Concomitant]
  4. LANSOPRAZOLE [Concomitant]

REACTIONS (2)
  - FALL [None]
  - HYPONATRAEMIA [None]
